FAERS Safety Report 17655571 (Version 2)
Quarter: 2020Q2

REPORT INFORMATION
  Report Type: Spontaneous
  Country: US (occurrence: US)
  Receive Date: 20200410
  Receipt Date: 20200413
  Transmission Date: 20200713
  Serious: No
  Sender: FDA-Public Use
  Company Number: US-PFIZER INC-2020148265

PATIENT
  Age: 70 Year
  Sex: Female
  Weight: 56.7 kg

DRUGS (6)
  1. CHANTIX [Suspect]
     Active Substance: VARENICLINE TARTRATE
     Indication: SMOKING CESSATION THERAPY
     Dosage: 1 MG, 2X/DAY (TAKE 1 IN THE MORNING AND 1 IN THE AFTERNOON)
     Route: 048
     Dates: start: 2019, end: 202002
  2. IBUPROFEN. [Concomitant]
     Active Substance: IBUPROFEN
     Indication: FEELING OF RELAXATION
     Dosage: UNK
  3. UNISOM [DOXYLAMINE SUCCINATE] [Concomitant]
     Indication: SLEEP DISORDER
     Dosage: 25 MG, 1X/DAY (25MG AT NIGHT)
  4. IBUPROFEN. [Concomitant]
     Active Substance: IBUPROFEN
     Indication: ANTICOAGULANT THERAPY
  5. IBUPROFEN. [Concomitant]
     Active Substance: IBUPROFEN
     Indication: PERIPHERAL SWELLING
  6. CLONAZEPAM. [Concomitant]
     Active Substance: CLONAZEPAM
     Indication: DEPRESSION
     Dosage: 0.5 MG, 1X/DAY(0.5MG AT NIGHT)
     Dates: start: 2005

REACTIONS (4)
  - Nightmare [Recovered/Resolved]
  - Abdominal discomfort [Recovered/Resolved]
  - Vomiting [Recovered/Resolved]
  - Fatigue [Unknown]

NARRATIVE: CASE EVENT DATE: 2019
